FAERS Safety Report 11255377 (Version 1)
Quarter: 2015Q3

REPORT INFORMATION
  Report Type: Report from Study
  Country: FR (occurrence: FR)
  Receive Date: 20150709
  Receipt Date: 20150709
  Transmission Date: 20151125
  Serious: Yes (Hospitalization)
  Sender: FDA-Public Use
  Company Number: FR-GLAXOSMITHKLINE-FR2015GSK098299

PATIENT
  Age: 60 Year
  Sex: Male

DRUGS (8)
  1. PLAVIX [Concomitant]
     Active Substance: CLOPIDOGREL BISULFATE
  2. OMEGA-3-ACID ETHYL ESTERS. [Suspect]
     Active Substance: OMEGA-3-ACID ETHYL ESTERS
     Indication: ISCHAEMIC HEART DISEASE PROPHYLAXIS
     Dosage: UNK
     Dates: start: 20070920, end: 20130112
  3. LASILIX [Concomitant]
     Active Substance: FUROSEMIDE
  4. CORVASAL [Concomitant]
     Active Substance: LINSIDOMINE
  5. COVERSYL [Concomitant]
     Active Substance: PERINDOPRIL
  6. PRAVASTATIN [Concomitant]
     Active Substance: PRAVASTATIN\PRAVASTATIN SODIUM
  7. KARDEGIC [Concomitant]
     Active Substance: ASPIRIN LYSINE
  8. TENORMIN [Concomitant]
     Active Substance: ATENOLOL

REACTIONS (2)
  - Syncope [Unknown]
  - Disease recurrence [Unknown]

NARRATIVE: CASE EVENT DATE: 20110201
